FAERS Safety Report 8531333-5 (Version None)
Quarter: 2012Q3

REPORT INFORMATION
  Report Type: 
  Country: None (occurrence: None)
  Receive Date: 20120723
  Receipt Date: 20120713
  Transmission Date: 20120928
  Serious: Yes (Other)
  Sender: FDA-Public Use
  Company Number: US-ASTRAZENECA-2012SE08499

PATIENT
  Age: 77 Year
  Sex: Male
  Weight: 103.9 kg

DRUGS (16)
  1. EYE DROPS [Concomitant]
     Indication: GLAUCOMA
  2. COUMADIN [Concomitant]
  3. GEMFIBROZIL [Concomitant]
  4. BENAZEPRIL HYDROCHLORIDE AND HYDROCHLOROTHIAZIDE [Concomitant]
     Dosage: DAILY
  5. ASPIRIN [Concomitant]
  6. TRIAMTERENE AND HYDROCHLOROTHIAZIDE [Concomitant]
     Dosage: DAILY
  7. SIMVASTATIN [Concomitant]
     Dosage: 40 MG ONE-HALF TABLET DAILY
  8. ATENOLOL [Suspect]
  9. AMLODIPINE [Concomitant]
  10. AMITRIPTYLINE HCL [Concomitant]
  11. ATACAND [Suspect]
     Route: 048
  12. FLECAINIDE ACETATE [Concomitant]
  13. TRAVOPROST [Concomitant]
     Dosage: DAILY
     Route: 047
  14. ATENOLOL [Suspect]
     Dosage: 100 MG TABLET 1-1/2 TABLETS DAILY
  15. AVODART [Concomitant]
     Dosage: 0.5 DAILY
  16. AMLODIPINE [Concomitant]
     Dosage: 10 MG ONE-HALF TABLET DAILY

REACTIONS (18)
  - EJECTION FRACTION DECREASED [None]
  - DYSPNOEA [None]
  - ATRIAL FIBRILLATION [None]
  - CORONARY ARTERY DISEASE [None]
  - BENIGN PROSTATIC HYPERPLASIA [None]
  - CHEST DISCOMFORT [None]
  - ARTHRALGIA [None]
  - HYPERTENSION [None]
  - BUNDLE BRANCH BLOCK LEFT [None]
  - NYSTAGMUS [None]
  - OEDEMA PERIPHERAL [None]
  - CARDIAC FAILURE CONGESTIVE [None]
  - OBESITY [None]
  - OSTEOARTHRITIS [None]
  - SLEEP APNOEA SYNDROME [None]
  - HYPERLIPIDAEMIA [None]
  - CEREBROVASCULAR ACCIDENT [None]
  - DIABETES MELLITUS [None]
